FAERS Safety Report 26125537 (Version 1)
Quarter: 2025Q4

REPORT INFORMATION
  Report Type: Spontaneous
  Country: EU (occurrence: EU)
  Receive Date: 20251205
  Receipt Date: 20251205
  Transmission Date: 20260118
  Serious: Yes (Other)
  Sender: Kenvue
  Company Number: None

PATIENT
  Age: 13 Year

DRUGS (1)
  1. ACETAMINOPHEN [Suspect]
     Active Substance: ACETAMINOPHEN
     Indication: Product used for unknown indication
     Dosage: PATIENT TOOK 50 TABLETS PARACETAMOL 500MG AT ONCE ON A SUICIDE ATTEMPT, TOTAL
     Route: 065

REACTIONS (2)
  - Intentional overdose [Unknown]
  - Suicide attempt [Unknown]
